FAERS Safety Report 11099557 (Version 1)
Quarter: 2015Q2

REPORT INFORMATION
  Report Type: Report from Study
  Country: US (occurrence: US)
  Receive Date: 20150508
  Receipt Date: 20150508
  Transmission Date: 20150821
  Serious: Yes (Other)
  Sender: FDA-Public Use
  Company Number: US-TAKEDA-2015MPI002936

PATIENT
  Age: 60 Year
  Sex: Male
  Weight: 96.15 kg

DRUGS (3)
  1. DEXAMETHASONE. [Suspect]
     Active Substance: DEXAMETHASONE
     Indication: PLASMA CELL MYELOMA
     Dosage: 20 MG, 1/WEEK
     Route: 042
     Dates: start: 20141229, end: 20150120
  2. VELCADE [Suspect]
     Active Substance: BORTEZOMIB
     Indication: PLASMA CELL MYELOMA
     Dosage: 1.6 MG/M2, UNK
     Route: 042
     Dates: start: 20141229, end: 20150120
  3. AREDIA [Concomitant]
     Active Substance: PAMIDRONATE DISODIUM
     Dosage: UNK
     Route: 065
     Dates: start: 20141224

REACTIONS (7)
  - Fall [Unknown]
  - Asthenia [Recovered/Resolved]
  - Atrial fibrillation [Unknown]
  - Spinal compression fracture [Unknown]
  - Influenza [Unknown]
  - Delirium [Unknown]
  - Cardiac failure congestive [Unknown]

NARRATIVE: CASE EVENT DATE: 20150124
